FAERS Safety Report 22110459 (Version 1)
Quarter: 2023Q1

REPORT INFORMATION
  Report Type: Spontaneous
  Country: US (occurrence: US)
  Receive Date: 20230317
  Receipt Date: 20230317
  Transmission Date: 20230417
  Serious: No
  Sender: FDA-Public Use
  Company Number: US-GLENMARK PHARMACEUTICALS-2023GMK079453

PATIENT

DRUGS (1)
  1. IMIQUIMOD [Suspect]
     Active Substance: IMIQUIMOD
     Indication: Neoplasm malignant
     Dosage: UNK, QD, (ONCE EVERY EVENING)
     Route: 061
     Dates: start: 20230206

REACTIONS (3)
  - Product use in unapproved indication [Unknown]
  - Dry skin [Unknown]
  - Scab [Unknown]
